FAERS Safety Report 5841904-2 (Version None)
Quarter: 2008Q3

REPORT INFORMATION
  Report Type: 
  Country: None (occurrence: None)
  Receive Date: 20080811
  Receipt Date: 20080811
  Transmission Date: 20090109
  Serious: Yes (Hospitalization)
  Sender: FDA-Public Use
  Company Number: None

PATIENT
  Age: 13 Year
  Sex: Male
  Weight: 63.5036 kg

DRUGS (4)
  1. SINGULAIR [Suspect]
     Indication: ASTHMA
     Dosage: 5 MG Q DAY -BEDTIME- PO
     Route: 048
     Dates: start: 20050315, end: 20080111
  2. SINGULAIR [Suspect]
     Indication: MULTIPLE ALLERGIES
     Dosage: 5 MG Q DAY -BEDTIME- PO
     Route: 048
     Dates: start: 20050315, end: 20080111
  3. SINGULAIR [Suspect]
     Indication: ASTHMA
     Dosage: 10 MG Q DAY -BEDTIME- PO
     Route: 048
     Dates: start: 20080111, end: 20080328
  4. SINGULAIR [Suspect]
     Indication: MULTIPLE ALLERGIES
     Dosage: 10 MG Q DAY -BEDTIME- PO
     Route: 048
     Dates: start: 20080111, end: 20080328

REACTIONS (23)
  - ABDOMINAL PAIN [None]
  - AFFECTIVE DISORDER [None]
  - ANXIETY [None]
  - ASTHMA EXERCISE INDUCED [None]
  - BELLIGERENCE [None]
  - DEPRESSION [None]
  - DRUG INEFFECTIVE [None]
  - EAR INFECTION [None]
  - EMOTIONAL DISORDER [None]
  - FATIGUE [None]
  - IRRITABILITY [None]
  - MENTAL DISORDER [None]
  - NAUSEA [None]
  - RESPIRATORY DISORDER [None]
  - RESTLESSNESS [None]
  - SCHOOL REFUSAL [None]
  - SINUSITIS [None]
  - SLEEP DISORDER [None]
  - SLEEP TALKING [None]
  - SOCIAL PROBLEM [None]
  - SUICIDAL IDEATION [None]
  - THINKING ABNORMAL [None]
  - VOMITING [None]
